FAERS Safety Report 23769083 (Version 2)
Quarter: 2024Q2

REPORT INFORMATION
  Report Type: Spontaneous
  Country: JP (occurrence: JP)
  Receive Date: 20240422
  Receipt Date: 20240628
  Transmission Date: 20240716
  Serious: Yes (Hospitalization, Other)
  Sender: FDA-Public Use
  Company Number: JP-BAYER-2024A056435

PATIENT
  Age: 29 Year
  Sex: Female

DRUGS (1)
  1. MIRENA [Suspect]
     Active Substance: LEVONORGESTREL
     Indication: Heavy menstrual bleeding
     Dosage: 20?G/DAY
     Route: 015
     Dates: start: 20240110, end: 20240319

REACTIONS (3)
  - Device expulsion [Recovered/Resolved]
  - Uterine haemorrhage [Recovered/Resolved]
  - Blood loss anaemia [None]

NARRATIVE: CASE EVENT DATE: 20240319
